FAERS Safety Report 23689176 (Version 2)
Quarter: 2024Q2

REPORT INFORMATION
  Report Type: Spontaneous
  Country: US (occurrence: None)
  Receive Date: 20240330
  Receipt Date: 20240517
  Transmission Date: 20240716
  Serious: Yes (Hospitalization)
  Sender: FDA-Public Use
  Company Number: US-ROCHE-3535056

PATIENT
  Sex: Female

DRUGS (3)
  1. ROZLYTREK [Suspect]
     Active Substance: ENTRECTINIB
     Indication: Lung neoplasm malignant
     Route: 048
     Dates: start: 202402
  2. ROZLYTREK [Suspect]
     Active Substance: ENTRECTINIB
     Dosage: 2 DF (DF: CAPSULE)
     Route: 048
  3. ROZLYTREK [Suspect]
     Active Substance: ENTRECTINIB
     Route: 048
     Dates: start: 202402

REACTIONS (6)
  - Dizziness [Unknown]
  - Fall [Unknown]
  - Ankle fracture [Unknown]
  - Diverticulitis [Unknown]
  - Somnolence [Unknown]
  - Urinary incontinence [Unknown]
